FAERS Safety Report 25399937 (Version 12)
Quarter: 2025Q4

REPORT INFORMATION
  Report Type: Report from Study
  Country: CA (occurrence: CA)
  Receive Date: 20250605
  Receipt Date: 20251230
  Transmission Date: 20260118
  Serious: Yes (Hospitalization, Other)
  Sender: CELLTRION
  Company Number: CA-CELLTRION INC.-2025CA012404

PATIENT

DRUGS (5)
  1. INFLIXIMAB-DYYB [Suspect]
     Active Substance: INFLIXIMAB-DYYB
     Indication: Colitis ulcerative
     Dosage: 1100 MG Q8 WEEKS
     Route: 042
     Dates: start: 20250422
  2. INFLIXIMAB-DYYB [Suspect]
     Active Substance: INFLIXIMAB-DYYB
     Dosage: 1100 MG Q8 WEEKS
     Route: 042
     Dates: start: 20250422
  3. INFLIXIMAB-DYYB [Suspect]
     Active Substance: INFLIXIMAB-DYYB
     Dosage: 1100 MG Q8 WEEKS
     Dates: start: 20250422
  4. INFLIXIMAB-DYYB [Suspect]
     Active Substance: INFLIXIMAB-DYYB
     Dosage: 1100 MG Q8 WEEKS
     Route: 042
     Dates: start: 20250422
  5. INFLIXIMAB-DYYB [Suspect]
     Active Substance: INFLIXIMAB-DYYB
     Dosage: 1100MG EVERY 6 WEEKS
     Route: 042
     Dates: start: 20250422, end: 202512

REACTIONS (15)
  - Condition aggravated [Unknown]
  - Haemoglobin decreased [Unknown]
  - Abdominal distension [Unknown]
  - Inflammation [Unknown]
  - Ill-defined disorder [Recovered/Resolved]
  - Colectomy [Unknown]
  - Malaise [Unknown]
  - Pallor [Recovered/Resolved]
  - Haematochezia [Unknown]
  - Abdominal pain [Recovering/Resolving]
  - Abscess intestinal [Recovering/Resolving]
  - Pain [Unknown]
  - Feeling abnormal [Unknown]
  - Weight decreased [Unknown]
  - Off label use [Unknown]

NARRATIVE: CASE EVENT DATE: 20250101
